FAERS Safety Report 9507943 (Version 2)
Quarter: 2013Q4

REPORT INFORMATION
  Report Type: Report from Study
  Country: US (occurrence: US)
  Receive Date: 20130909
  Receipt Date: 20131023
  Transmission Date: 20140711
  Serious: Yes (Hospitalization)
  Sender: FDA-Public Use
  Company Number: US-ELI_LILLY_AND_COMPANY-US201308008613

PATIENT
  Age: 63 Year
  Sex: Male
  Weight: 76.28 kg

DRUGS (12)
  1. NECITUMUMAB (11F8) (LY3012211) [Suspect]
     Indication: NEOPLASM
     Dosage: 800 MG, UNK
     Route: 042
     Dates: start: 20130717, end: 20130812
  2. GEMCITABINE HYDROCHLORIDE [Suspect]
     Indication: NEOPLASM
     Dosage: 1250 MG/M2, UNK
     Route: 042
     Dates: start: 20130715, end: 20130805
  3. CISPLATIN [Suspect]
     Indication: NEOPLASM
     Dosage: 75 MG/M2, UNK
     Route: 042
     Dates: start: 20130715, end: 20130805
  4. ASPIRIN [Concomitant]
     Indication: TRANSIENT ISCHAEMIC ATTACK
     Dosage: UNK
     Dates: start: 20120216
  5. LORAZEPAM [Concomitant]
     Indication: ANXIETY
     Dosage: UNK
     Dates: start: 20130815
  6. CHERATUSSIN AC [Concomitant]
     Indication: COUGH
     Dosage: UNK
     Dates: start: 20120927
  7. CHLORPROMAZINE                     /00011902/ [Concomitant]
     Indication: HICCUPS
     Dosage: UNK
  8. MAGNESIUM OXIDE [Concomitant]
     Indication: HYPOMAGNESAEMIA
     Dosage: UNK
     Dates: start: 20130812
  9. GABAPENTIN [Concomitant]
     Indication: NEUROPATHY PERIPHERAL
     Dosage: UNK
     Dates: start: 20121219
  10. OMEPRAZOL                          /00661201/ [Concomitant]
     Indication: REFLUX GASTRITIS
     Dosage: UNK
     Dates: start: 20130717
  11. PROCHLORPERAZINE                   /00013304/ [Concomitant]
     Indication: NAUSEA
     Dosage: UNK
     Dates: start: 20130715
  12. CALCIUM CARBONATE [Concomitant]
     Indication: DYSPEPSIA
     Dosage: UNK
     Dates: start: 20130423

REACTIONS (1)
  - Ischaemic stroke [Recovered/Resolved]
